FAERS Safety Report 16627057 (Version 1)
Quarter: 2019Q3

REPORT INFORMATION
  Report Type: Spontaneous
  Country: US (occurrence: US)
  Receive Date: 20190724
  Receipt Date: 20190724
  Transmission Date: 20191004
  Serious: No
  Sender: FDA-Public Use
  Company Number: US-SA-2019SA199091

PATIENT
  Sex: Male
  Weight: 86.18 kg

DRUGS (12)
  1. LISINOPRIL. [Concomitant]
     Active Substance: LISINOPRIL
     Dosage: 1 TAB QD
     Route: 048
     Dates: start: 20190111
  2. NORMAL SALINE [Concomitant]
     Active Substance: SODIUM CHLORIDE
     Dosage: 250 ML, 0.9 % DILUTION FLUSH
     Route: 042
     Dates: start: 20190115
  3. SODIUM CHLORIDE 0.9% [Concomitant]
     Active Substance: SODIUM CHLORIDE
     Dosage: 0.90% FLUSH
     Route: 042
     Dates: start: 20190115
  4. LEVOCETIRIZINE DIHYDROCHLORIDE. [Concomitant]
     Active Substance: LEVOCETIRIZINE DIHYDROCHLORIDE
     Dosage: 1 TAB
     Route: 048
     Dates: start: 20190111
  5. CARVEDILOL. [Concomitant]
     Active Substance: CARVEDILOL
     Dosage: 1 TAB, QD
     Route: 048
     Dates: start: 20190111
  6. SIMVASTATIN. [Concomitant]
     Active Substance: SIMVASTATIN
     Dosage: 1 TAB QD
     Route: 048
     Dates: start: 20190111
  7. EPINEPHRINE. [Concomitant]
     Active Substance: EPINEPHRINE
     Dosage: 0.3 MG%, PRN
     Route: 030
     Dates: start: 20190115
  8. METFORMIN HCL [Concomitant]
     Active Substance: METFORMIN HYDROCHLORIDE
     Dosage: 1 TAB, QD
     Route: 048
     Dates: start: 20190111
  9. EZETIMIBE. [Concomitant]
     Active Substance: EZETIMIBE
     Dosage: 1 TAB QD
     Route: 048
     Dates: start: 20190111
  10. ASPIRIN 81 [Concomitant]
     Active Substance: ASPIRIN
     Dosage: 1 TAB, QD
     Route: 048
     Dates: start: 20190111
  11. STERILE WATER [Concomitant]
     Active Substance: WATER
     Dosage: 130 ML RECONSTITUTE
     Route: 042
     Dates: start: 20190115
  12. CEREZYME [Suspect]
     Active Substance: IMIGLUCERASE
     Indication: LIPIDOSIS
     Dosage: 5200 UN, QOW
     Route: 042
     Dates: start: 20190111

REACTIONS (1)
  - Viral infection [Unknown]
